FAERS Safety Report 7568018-8 (Version None)
Quarter: 2011Q2

REPORT INFORMATION
  Report Type: 
  Country: None (occurrence: None)
  Receive Date: 20110616
  Receipt Date: 20110405
  Transmission Date: 20111010
  Serious: Yes (Other)
  Sender: FDA-Public Use
  Company Number: FK201100702

PATIENT
  Age: 46 Year
  Sex: Male

DRUGS (4)
  1. PALIFERMIN (PALIFERMIN) (PALIFERMIN) [Suspect]
     Indication: MUCOSAL INFLAMMATION
  2. CYTARABINE [Concomitant]
     Indication: ACUTE MYELOID LEUKAEMIA
     Dosage: 3000 MG/M2, INTRAVNEOUS (NOT OTHERWISE SPECIFIED)
     Route: 042
  3. IDARUBICIN HCL [Suspect]
     Indication: ACUTE MYELOID LEUKAEMIA
     Dosage: 9 MG/M2, 1 D, INTRAVNEOUS (NOT OTHERWISE SPECIFIED)
  4. ETOPOSIDE [Suspect]
     Indication: ACUTE MYELOID LEUKAEMIA
     Dosage: 75 MG/M2, 1 D, INTRACENOUS (NOT OTHER SPECIFIED)
     Route: 042

REACTIONS (11)
  - EPIDERMOLYSIS [None]
  - SKIN REACTION [None]
  - BURNING SENSATION [None]
  - ERYTHEMA [None]
  - PALLOR [None]
  - STOMATITIS [None]
  - SCAR [None]
  - OEDEMA [None]
  - PALMAR-PLANTAR ERYTHRODYSAESTHESIA SYNDROME [None]
  - BLISTER [None]
  - SKIN EXFOLIATION [None]
